FAERS Safety Report 7328563-7 (Version None)
Quarter: 2011Q1

REPORT INFORMATION
  Report Type: 
  Country: None (occurrence: None)
  Receive Date: 20110303
  Receipt Date: 20081120
  Transmission Date: 20110831
  Serious: Yes (Death, Other)
  Sender: FDA-Public Use
  Company Number: US-BAYER-200835101NA

PATIENT
  Sex: Male

DRUGS (33)
  1. DILAUDID [Concomitant]
  2. RENAGEL [Concomitant]
  3. EPOGEN [Concomitant]
  4. DILANTIN [Concomitant]
  5. PAMELOR [Concomitant]
  6. MUCINEX [Concomitant]
  7. MAGNEVIST [Suspect]
     Dosage: 20 ML, ONCE
     Dates: start: 20060413, end: 20060413
  8. OMNISCAN [Suspect]
     Indication: NUCLEAR MAGNETIC RESONANCE IMAGING
  9. MORPHINE [Concomitant]
  10. DARVOCET-N 100 [Concomitant]
  11. DEPAKOTE [Concomitant]
  12. OCEAN NASAL [Concomitant]
  13. PROHANCE [Suspect]
     Indication: NUCLEAR MAGNETIC RESONANCE IMAGING
  14. DURAGESIC-50 [Concomitant]
  15. TOPAMAX [Concomitant]
  16. LEXAPRO [Concomitant]
  17. DEMEROL [Concomitant]
  18. OPTIMARK [Suspect]
     Indication: NUCLEAR MAGNETIC RESONANCE IMAGING
  19. TUMS [CALCIUM CARBONATE] [Concomitant]
  20. ALBUTEROL [Concomitant]
  21. AMBIEN [Concomitant]
  22. PAXIL [Concomitant]
  23. HUMIBID [Concomitant]
  24. PROTONIX [Concomitant]
  25. MIRAPEX [Concomitant]
  26. VENTOLIN [Concomitant]
  27. TOPROL-XL [Concomitant]
  28. SKELAXIN [Concomitant]
  29. MAGNEVIST [Suspect]
     Indication: NUCLEAR MAGNETIC RESONANCE IMAGING
     Dosage: 20 ML, ONCE
     Dates: start: 20041201, end: 20041201
  30. MAGNEVIST [Suspect]
     Dosage: 20 ML, ONCE
     Dates: start: 20060324, end: 20060324
  31. MULTIHANCE [Suspect]
     Indication: NUCLEAR MAGNETIC RESONANCE IMAGING
  32. FLOVENT [Concomitant]
  33. FLONASE [Concomitant]

REACTIONS (20)
  - INJURY [None]
  - OEDEMA PERIPHERAL [None]
  - DRY SKIN [None]
  - OEDEMA [None]
  - NODULE [None]
  - SKIN HYPERTROPHY [None]
  - NEPHROGENIC SYSTEMIC FIBROSIS [None]
  - ANXIETY [None]
  - PAIN IN EXTREMITY [None]
  - RASH PAPULAR [None]
  - FIBROSIS [None]
  - EMOTIONAL DISTRESS [None]
  - MOBILITY DECREASED [None]
  - JOINT RANGE OF MOTION DECREASED [None]
  - OCULAR HYPERAEMIA [None]
  - PAIN [None]
  - PRURITUS [None]
  - SKIN INDURATION [None]
  - SKIN EXFOLIATION [None]
  - EXTREMITY CONTRACTURE [None]
